FAERS Safety Report 17349204 (Version 2)
Quarter: 2020Q1

REPORT INFORMATION
  Report Type: Spontaneous
  Country: US (occurrence: US)
  Receive Date: 20200130
  Receipt Date: 20200131
  Transmission Date: 20200409
  Serious: Yes (Death, Hospitalization, Other)
  Sender: FDA-Public Use
  Company Number: US-009507513-1210USA006581

PATIENT
  Age: 15 Month
  Sex: Female

DRUGS (10)
  1. M-M-R II [Suspect]
     Active Substance: MEASLES VIRUS STRAIN ENDERS^ ATTENUATED EDMONSTON LIVE ANTIGEN\MUMPS VIRUS STRAIN B LEVEL JERYL LYNN LIVE ANTIGEN\RUBELLA VIRUS STRAIN WISTAR RA 27/3 LIVE ANTIGEN
     Indication: PROPHYLAXIS
     Dates: start: 20090812, end: 20090812
  2. STERILE DILUENT (WATER) [Suspect]
     Active Substance: WATER
     Indication: PROPHYLAXIS
     Dosage: UNK
  3. POLY-VI-SOL [Concomitant]
     Active Substance: VITAMINS
     Dosage: UNK
  4. NYSTATIN. [Concomitant]
     Active Substance: NYSTATIN
     Dosage: UNK, PRN
  5. PEDVAXHIB [Suspect]
     Active Substance: HAEMOPHILUS INFLUENZAE TYPE B CAPSULAR POLYSACCHARIDE MENINGOCOCCAL OUTER MEMBRANE PROTEIN CONJUGATE ANTIGEN
     Indication: PROPHYLAXIS
     Dates: start: 20090812, end: 20090812
  6. FERRIN [Concomitant]
     Dosage: UNK
  7. VARIVAX [Suspect]
     Active Substance: VARICELLA-ZOSTER VIRUS STRAIN OKA/MERCK LIVE ANTIGEN
     Indication: PROPHYLAXIS
     Dates: start: 20090812, end: 20090812
  8. LANSOPRAZOLE. [Concomitant]
     Active Substance: LANSOPRAZOLE
     Dosage: UNK
  9. BACTROBAN [Concomitant]
     Active Substance: MUPIROCIN\MUPIROCIN CALCIUM
     Dosage: UNK, PRN
  10. PNEUMOVAX 23 [Suspect]
     Active Substance: PNEUMOCOCCAL VACCINE, POLYVALENT 23
     Indication: PROPHYLAXIS
     Dates: start: 20090812, end: 20090812

REACTIONS (9)
  - Respiratory distress [Fatal]
  - Varicella zoster pneumonia [Fatal]
  - Rash vesicular [Fatal]
  - Multiple organ dysfunction syndrome [Fatal]
  - Contraindication to vaccination [Unknown]
  - Acute respiratory failure [Fatal]
  - Sepsis [Fatal]
  - Respiratory distress [Recovered/Resolved]
  - Pneumothorax [Unknown]

NARRATIVE: CASE EVENT DATE: 20090819
